FAERS Safety Report 11349442 (Version 2)
Quarter: 2015Q3

REPORT INFORMATION
  Report Type: Spontaneous
  Country: JP (occurrence: JP)
  Receive Date: 20150807
  Receipt Date: 20150820
  Transmission Date: 20151125
  Serious: Yes (Other)
  Sender: FDA-Public Use
  Company Number: JP-ACCORD-032893

PATIENT
  Age: 57 Year
  Sex: Female

DRUGS (2)
  1. NEDAPLATIN [Suspect]
     Active Substance: NEDAPLATIN
     Indication: OVARIAN CANCER STAGE IV
  2. GEMCITABINE/GEMCITABINE HYDROCHLORIDE [Suspect]
     Active Substance: GEMCITABINE\GEMCITABINE HYDROCHLORIDE
     Indication: OVARIAN CANCER STAGE IV
     Dosage: 1,000MG/M/2: DAY 1 AND 8 Q3WEEKS

REACTIONS (5)
  - Anaemia [Unknown]
  - Cytopenia [Unknown]
  - White blood cell count decreased [Unknown]
  - Rash [Unknown]
  - Hypersensitivity [Unknown]
